FAERS Safety Report 8629469 (Version 3)
Quarter: 2013Q3

REPORT INFORMATION
  Report Type: Spontaneous
  Country: US (occurrence: US)
  Receive Date: 20120622
  Receipt Date: 20130925
  Transmission Date: 20140515
  Serious: Yes (Hospitalization, Disabling, Other)
  Sender: FDA-Public Use
  Company Number: US-ASTRAZENECA-2012SE35775

PATIENT
  Age: 23130 Day
  Sex: Male
  Weight: 77.1 kg

DRUGS (19)
  1. NEXIUM [Suspect]
     Indication: ULCER
     Route: 048
     Dates: start: 20030624
  2. NEXIUM [Suspect]
     Indication: ABDOMINAL DISCOMFORT
     Route: 048
     Dates: start: 20030624
  3. NEXIUM [Suspect]
     Indication: GASTROOESOPHAGEAL REFLUX DISEASE
     Route: 048
     Dates: start: 20030624
  4. NEXIUM [Suspect]
     Indication: ULCER
     Route: 048
     Dates: start: 20090819
  5. NEXIUM [Suspect]
     Indication: ABDOMINAL DISCOMFORT
     Route: 048
     Dates: start: 20090819
  6. NEXIUM [Suspect]
     Indication: GASTROOESOPHAGEAL REFLUX DISEASE
     Route: 048
     Dates: start: 20090819
  7. NEXIUM [Suspect]
     Indication: ULCER
     Route: 048
     Dates: start: 200204, end: 200906
  8. NEXIUM [Suspect]
     Indication: ABDOMINAL DISCOMFORT
     Route: 048
     Dates: start: 200204, end: 200906
  9. NEXIUM [Suspect]
     Indication: GASTROOESOPHAGEAL REFLUX DISEASE
     Route: 048
     Dates: start: 200204, end: 200906
  10. TUMS [Concomitant]
  11. LIPITOR [Concomitant]
     Indication: HYPERTENSION
  12. CELEBREX [Concomitant]
     Indication: PAIN IN EXTREMITY
  13. LORTAB [Concomitant]
     Indication: BLOOD CHOLESTEROL INCREASED
     Dosage: 5/500 BID
  14. LORTAB [Concomitant]
     Indication: BLOOD CHOLESTEROL INCREASED
     Dosage: 10/200 MG QD
  15. ASA [Concomitant]
  16. ZYRTEC [Concomitant]
     Indication: HYPERSENSITIVITY
  17. LOTREL [Concomitant]
     Dosage: 10/200 MG QD
  18. ACTOS [Concomitant]
  19. PLAVIX [Concomitant]

REACTIONS (7)
  - Cataract [Unknown]
  - Hernia [Unknown]
  - Osteoporosis [Unknown]
  - Multiple fractures [Unknown]
  - Diabetes mellitus [Unknown]
  - Fibula fracture [Unknown]
  - Ankle fracture [Unknown]
